FAERS Safety Report 9269570 (Version 1)
Quarter: 2013Q2

REPORT INFORMATION
  Report Type: Spontaneous
  Country: NL (occurrence: NL)
  Receive Date: 20130503
  Receipt Date: 20130503
  Transmission Date: 20140414
  Serious: Yes (Other)
  Sender: FDA-Public Use
  Company Number: NL-PFIZER INC-2013134293

PATIENT
  Age: 45 Year
  Sex: Male
  Weight: 100 kg

DRUGS (7)
  1. ATORVASTATIN CALCIUM [Suspect]
     Indication: MYOCARDIAL INFARCTION
     Dosage: 40 MG, ONCE DAILY
     Dates: start: 19871224
  2. SELOKEEN [Concomitant]
     Dosage: UNK
  3. ACUPRIL [Concomitant]
     Dosage: UNK
  4. EFFIENT [Concomitant]
  5. ACETYLSALICYLIC ACID [Concomitant]
  6. PANTOZOL [Concomitant]
  7. SURGAM [Concomitant]

REACTIONS (6)
  - Suicidal ideation [Not Recovered/Not Resolved]
  - Depressed mood [Not Recovered/Not Resolved]
  - Gait disturbance [Not Recovered/Not Resolved]
  - Amnesia [Not Recovered/Not Resolved]
  - Myalgia [Not Recovered/Not Resolved]
  - Libido decreased [Not Recovered/Not Resolved]
